FAERS Safety Report 17194829 (Version 1)
Quarter: 2019Q4

REPORT INFORMATION
  Report Type: Report from Study
  Country: DE (occurrence: DE)
  Receive Date: 20191224
  Receipt Date: 20191224
  Transmission Date: 20200122
  Serious: Yes (Other)
  Sender: FDA-Public Use
  Company Number: DE-SUN PHARMACEUTICAL INDUSTRIES LTD-2019RR-231736

PATIENT
  Age: 52 Year
  Sex: Male

DRUGS (14)
  1. ODOMZO [Suspect]
     Active Substance: SONIDEGIB
     Indication: BASAL CELL CARCINOMA
     Dosage: 200 MILLIGRAM, DAILY
     Route: 048
     Dates: start: 20190131, end: 20190328
  2. TIOTROPIUM [Concomitant]
     Active Substance: TIOTROPIUM
     Indication: PRE-EXISTING DISEASE
     Dosage: 18 MICROGRAM, DAILY
     Route: 048
     Dates: start: 2013
  3. INSULIN DETERMIR [Concomitant]
     Indication: PRE-EXISTING DISEASE
     Dosage: 24.000 INTERNATIONAL UNIT, DAILY
     Route: 058
     Dates: start: 2013
  4. TORASEMID [Concomitant]
     Active Substance: TORSEMIDE
     Indication: PRE-EXISTING DISEASE
     Dosage: 5 MILLIGRAM, DAILY
     Route: 048
     Dates: start: 201312
  5. CARVEDILOL. [Concomitant]
     Active Substance: CARVEDILOL
     Indication: PRE-EXISTING DISEASE
     Dosage: 12.5 MILLIGRAM, DAILY
     Route: 065
     Dates: start: 2013
  6. NABRADIN [Concomitant]
     Indication: PRE-EXISTING DISEASE
     Dosage: 7.5 MILLIGRAM, DAILY
     Route: 048
     Dates: start: 2013
  7. COLICALCIFEROL [Concomitant]
     Indication: PRE-EXISTING DISEASE
     Dosage: 500 INTERNATIONAL UNIT, DAILY
     Route: 048
     Dates: start: 2013
  8. SITAGLIPTIN [Concomitant]
     Active Substance: SITAGLIPTIN
     Indication: PRE-EXISTING DISEASE
     Dosage: 100 MILLIGRAM, DAILY
     Route: 048
     Dates: start: 2013
  9. BUDESONID [Concomitant]
     Active Substance: BUDESONIDE
     Indication: PRE-EXISTING DISEASE
     Dosage: UNK, DAILY
     Route: 048
     Dates: start: 2013
  10. RAMIPRIL. [Concomitant]
     Active Substance: RAMIPRIL
     Indication: PRE-EXISTING DISEASE
     Dosage: 5 MILLIGRAM, DAILY
     Route: 065
     Dates: start: 2013
  11. SIMVASTATIN. [Concomitant]
     Active Substance: SIMVASTATIN
     Indication: PRE-EXISTING DISEASE
     Dosage: 20 MILLIGRAM, DAILY
     Route: 048
     Dates: start: 2013
  12. EPLERENON [Concomitant]
     Active Substance: EPLERENONE
     Indication: PRE-EXISTING DISEASE
     Dosage: 25 MILLIGRAM, DAILY
     Route: 048
     Dates: start: 2013
  13. INSULIN ASPART [Concomitant]
     Active Substance: INSULIN ASPART
     Indication: PRE-EXISTING DISEASE
     Dosage: 8 INTERNATIONAL UNIT, TID
     Route: 058
     Dates: start: 2013
  14. ACETYLSALICYLSAURE [Concomitant]
     Active Substance: ASPIRIN
     Indication: PRE-EXISTING DISEASE
     Dosage: 100 MILLIGRAM, DAILY
     Route: 048
     Dates: start: 2013

REACTIONS (2)
  - Thrombocytopenia [Not Recovered/Not Resolved]
  - Platelet count decreased [Unknown]
